FAERS Safety Report 10955452 (Version 1)
Quarter: 2015Q1

REPORT INFORMATION
  Report Type: Spontaneous
  Country: US (occurrence: None)
  Receive Date: 20150325
  Receipt Date: 20150325
  Transmission Date: 20150721
  Serious: Yes (Death, Life-Threatening)
  Sender: FDA-Public Use
  Company Number: None

PATIENT
  Age: 1 Day
  Sex: Female
  Weight: .6 kg

DRUGS (15)
  1. AMPICILLIN [Concomitant]
     Active Substance: AMPICILLIN
  2. ATROPINE [Concomitant]
     Active Substance: ATROPINE
  3. FENTANYL. [Concomitant]
     Active Substance: FENTANYL
  4. CAFFEINE. [Concomitant]
     Active Substance: CAFFEINE
  5. DOPAMINE [Concomitant]
     Active Substance: DOPAMINE\DOPAMINE HYDROCHLORIDE
  6. ERYTHROMYCIN OPTHALMIC KL [Concomitant]
  7. LORAZEPAM. [Concomitant]
     Active Substance: LORAZEPAM
  8. HYDROCORTISONE. [Concomitant]
     Active Substance: HYDROCORTISONE
  9. INSULIN [Concomitant]
     Active Substance: INSULIN NOS
  10. DOBUTAMINE [Concomitant]
     Active Substance: DOBUTAMINE\DOBUTAMINE HYDROCHLORIDE
  11. ALPROSTADIL 500 MCG/ML [Suspect]
     Active Substance: ALPROSTADIL
     Indication: HEART DISEASE CONGENITAL
     Route: 042
     Dates: start: 20141212, end: 20141213
  12. TPN/030 [Concomitant]
  13. GENTAMICIN. [Concomitant]
     Active Substance: GENTAMICIN
  14. PHYTONADIONE. [Concomitant]
     Active Substance: PHYTONADIONE
  15. IV FLUIDS [Concomitant]
     Active Substance: UNSPECIFIED INGREDIENT

REACTIONS (1)
  - Bradycardia [None]

NARRATIVE: CASE EVENT DATE: 20141212
